FAERS Safety Report 12879573 (Version 1)
Quarter: 2016Q4

REPORT INFORMATION
  Report Type: Spontaneous
  Country: CN (occurrence: CN)
  Receive Date: 20161025
  Receipt Date: 20161025
  Transmission Date: 20170207
  Serious: Yes (Hospitalization)
  Sender: FDA-Public Use
  Company Number: CN-PFIZER INC-2016494049

PATIENT
  Age: 72 Year
  Sex: Female
  Weight: 64 kg

DRUGS (2)
  1. PLAVIX [Suspect]
     Active Substance: CLOPIDOGREL BISULFATE
     Indication: ANGINA UNSTABLE
     Dosage: 75 MG, 1X/DAY
     Route: 048
     Dates: start: 20160614, end: 20160627
  2. LIPITOR [Suspect]
     Active Substance: ATORVASTATIN CALCIUM
     Indication: ANGINA UNSTABLE
     Dosage: 10 MG, 1X/DAY
     Route: 048
     Dates: start: 20160614, end: 20160627

REACTIONS (4)
  - Erythema [Recovered/Resolved]
  - Dermatitis atopic [Recovered/Resolved]
  - Papule [Recovered/Resolved]
  - Rash maculo-papular [Recovered/Resolved]

NARRATIVE: CASE EVENT DATE: 20160627
